FAERS Safety Report 5715429-9 (Version None)
Quarter: 2008Q2

REPORT INFORMATION
  Report Type: 
  Country: None (occurrence: None)
  Receive Date: 20080423
  Receipt Date: 20080416
  Transmission Date: 20081010
  Serious: Yes (Hospitalization)
  Sender: FDA-Public Use
  Company Number: US-PFIZER INC-2008033548

PATIENT
  Sex: Female

DRUGS (17)
  1. IRINOTECAN HCL [Suspect]
     Indication: NEOPLASM
     Dosage: DAILY DOSE:35.4-FREQ:X 5/D X 2 WEEKS
     Route: 042
     Dates: start: 20061127, end: 20061208
  2. CETUXIMAB [Suspect]
     Indication: NEOPLASM
     Dosage: DAILY DOSE:442.5-FREQ:3 DOSES EVERY 7 DAYS
     Route: 042
     Dates: start: 20061127, end: 20061211
  3. ACETYLSALICYLIC ACID SRT [Concomitant]
  4. LOPERAMIDE HCL [Concomitant]
  5. MORPHINE [Concomitant]
  6. VANTIN [Concomitant]
  7. ATIVAN [Concomitant]
  8. TRILISATE [Concomitant]
  9. VISTARIL [Concomitant]
  10. FERROUS SULFATE TAB [Concomitant]
  11. AMBIEN [Concomitant]
  12. BENADRYL [Concomitant]
  13. PEPCID [Concomitant]
  14. TYLENOL [Concomitant]
  15. SCOPOLAMINE [Concomitant]
  16. PROMETHAZINE HCL [Concomitant]
  17. ZOFRAN [Concomitant]

REACTIONS (3)
  - CATHETER RELATED INFECTION [None]
  - CHILLS [None]
  - HYPOKALAEMIA [None]
